FAERS Safety Report 22083551 (Version 1)
Quarter: 2023Q1

REPORT INFORMATION
  Report Type: Spontaneous
  Country: US (occurrence: None)
  Receive Date: 20230309
  Receipt Date: 20230309
  Transmission Date: 20230418
  Serious: No
  Sender: FDA-Public Use
  Company Number: None

PATIENT

DRUGS (1)
  1. CLONIDINE [Suspect]
     Active Substance: CLONIDINE

REACTIONS (4)
  - Product dispensing error [None]
  - Incorrect dose administered [None]
  - Product label issue [None]
  - Underdose [None]

NARRATIVE: CASE EVENT DATE: 20221231
